FAERS Safety Report 14975390 (Version 3)
Quarter: 2018Q3

REPORT INFORMATION
  Report Type: Spontaneous
  Country: NL (occurrence: NL)
  Receive Date: 20180605
  Receipt Date: 20180801
  Transmission Date: 20181010
  Serious: Yes (Other)
  Sender: FDA-Public Use
  Company Number: NL-MYLANLABS-2018M1036820

PATIENT
  Age: 26 Year
  Sex: Male

DRUGS (2)
  1. FUSIDINE [Concomitant]
     Indication: DERMAL CYST
  2. PRIODERM [Suspect]
     Active Substance: MALATHION
     Indication: LICE INFESTATION
     Dosage: 40 ML, ONCE
     Route: 003
     Dates: start: 20180525, end: 20180526

REACTIONS (13)
  - Tinnitus [Recovered/Resolved]
  - Hypoaesthesia [Recovering/Resolving]
  - Headache [Unknown]
  - Skin atrophy [Not Recovered/Not Resolved]
  - Overdose [Unknown]
  - Vision blurred [Not Recovered/Not Resolved]
  - Dizziness [Recovered/Resolved]
  - Salivary hypersecretion [Recovering/Resolving]
  - Muscular weakness [Not Recovered/Not Resolved]
  - Skin sensitisation [Not Recovered/Not Resolved]
  - Deafness [Not Recovered/Not Resolved]
  - Nausea [Unknown]
  - Skin irritation [Recovered/Resolved]

NARRATIVE: CASE EVENT DATE: 20180525
